FAERS Safety Report 19291655 (Version 1)
Quarter: 2021Q2

REPORT INFORMATION
  Report Type: Spontaneous
  Country: US (occurrence: US)
  Receive Date: 20210523
  Receipt Date: 20210523
  Transmission Date: 20210717
  Serious: No
  Sender: FDA-Public Use
  Company Number: US-DRREDDYS-USA/USA/21/0135575

PATIENT
  Age: 30 Year
  Sex: Male

DRUGS (1)
  1. ZENATANE [Suspect]
     Active Substance: ISOTRETINOIN
     Indication: PRODUCT USED FOR UNKNOWN INDICATION
     Dosage: RMA ISSUE DATE: 05 JANUARY 2021 11:29:03 AM, 08 MARCH 2021 3:18:55 PM, 12 APRIL 2021 12:03:56 PM

REACTIONS (3)
  - Condition aggravated [Unknown]
  - Oral herpes [Unknown]
  - Photosensitivity reaction [Unknown]
